FAERS Safety Report 8791034 (Version 1)
Quarter: 2012Q4

REPORT INFORMATION
  Report Type: Spontaneous
  Country: US (occurrence: None)
  Receive Date: 20120906
  Receipt Date: 20120906
  Transmission Date: 20130627
  Serious: Yes (Other)
  Sender: FDA-Public Use
  Company Number: ACET20120010

PATIENT
  Age: 30 Year
  Sex: Male

DRUGS (1)
  1. Q-PAP TABLETS 325MG (PARACETAMOL) (TABLETS) [Suspect]
     Indication: DRUG ABUSE
     Dosage: INTRA-NASAL
     Route: 045

REACTIONS (5)
  - Intentional drug misuse [None]
  - Drug abuse [None]
  - Nasopharyngitis [None]
  - Upper respiratory fungal infection [None]
  - Nasal septum perforation [None]
